FAERS Safety Report 5117924-2 (Version None)
Quarter: 2006Q3

REPORT INFORMATION
  Report Type: 
  Country: None (occurrence: None)
  Receive Date: 20060929
  Receipt Date: 20060809
  Transmission Date: 20061208
  Serious: Yes (Hospitalization)
  Sender: FDA-Public Use
  Company Number: 2006AP03742

PATIENT
  Age: 31160 Day
  Sex: Female

DRUGS (2)
  1. ATACAND HCT [Suspect]
     Dosage: 16/12.5
     Route: 048
     Dates: end: 20060226
  2. PREDNISOLONE [Concomitant]
     Route: 048

REACTIONS (5)
  - DYSPNOEA [None]
  - HYPONATRAEMIA [None]
  - NAUSEA [None]
  - RESPIRATORY TRACT INFECTION [None]
  - VOMITING [None]
